FAERS Safety Report 9016409 (Version 2)
Quarter: 2013Q1

REPORT INFORMATION
  Report Type: Spontaneous
  Country: CA (occurrence: CA)
  Receive Date: 20130116
  Receipt Date: 20130205
  Transmission Date: 20140127
  Serious: Yes (Other)
  Sender: FDA-Public Use
  Company Number: CA-GLAXOSMITHKLINE-A0925379A

PATIENT
  Age: 61 None
  Sex: Female
  Weight: 92.7 kg

DRUGS (9)
  1. ADVAIR [Suspect]
     Indication: ASTHMA
     Dosage: 1PUFF TWICE PER DAY
     Route: 055
     Dates: start: 1991
  2. PREDNISONE [Suspect]
     Indication: PRODUCT USED FOR UNKNOWN INDICATION
     Dosage: 5MG SEE DOSAGE TEXT
     Route: 065
     Dates: start: 201105, end: 20110524
  3. VENTOLIN [Concomitant]
     Indication: PRODUCT USED FOR UNKNOWN INDICATION
     Route: 065
  4. THYROID MEDICATION [Concomitant]
     Indication: PRODUCT USED FOR UNKNOWN INDICATION
     Route: 065
  5. TRIAZIDE [Concomitant]
     Indication: BLOOD PRESSURE
     Route: 065
  6. DIOVAN [Concomitant]
     Indication: PRODUCT USED FOR UNKNOWN INDICATION
     Dosage: 80MG PER DAY
     Route: 065
  7. SPIRIVA [Concomitant]
     Indication: PRODUCT USED FOR UNKNOWN INDICATION
     Route: 065
  8. SYNTHROID [Concomitant]
     Indication: PRODUCT USED FOR UNKNOWN INDICATION
     Dosage: .125MG PER DAY
     Route: 065
  9. AVAMYS [Concomitant]
     Indication: PRODUCT USED FOR UNKNOWN INDICATION
     Dosage: 1PUFF PER DAY
     Route: 045

REACTIONS (14)
  - Cough [Recovered/Resolved]
  - Middle insomnia [Not Recovered/Not Resolved]
  - Wheezing [Recovered/Resolved]
  - Lower respiratory tract infection [Recovered/Resolved]
  - Dysphonia [Not Recovered/Not Resolved]
  - Blood potassium decreased [Not Recovered/Not Resolved]
  - Tinnitus [Unknown]
  - Arthritis [Unknown]
  - Drug interaction [Unknown]
  - Oral fungal infection [Not Recovered/Not Resolved]
  - Nasopharyngitis [Recovered/Resolved]
  - Pulmonary congestion [Recovering/Resolving]
  - Upper-airway cough syndrome [Not Recovered/Not Resolved]
  - Feeling abnormal [Not Recovered/Not Resolved]
